FAERS Safety Report 9311681 (Version 2)
Quarter: 2013Q2

REPORT INFORMATION
  Report Type: Spontaneous
  Country: JP (occurrence: JP)
  Receive Date: 20130528
  Receipt Date: 20130531
  Transmission Date: 20140414
  Serious: Yes (Death, Life-Threatening, Hospitalization)
  Sender: FDA-Public Use
  Company Number: JP-PFIZER INC-2013107593

PATIENT
  Age: 67 Year
  Sex: Male
  Weight: 42.5 kg

DRUGS (3)
  1. INLYTA [Suspect]
     Indication: RENAL CANCER
     Dosage: 5 MG, 2X/DAY
     Route: 048
     Dates: start: 20130131, end: 20130227
  2. INLYTA [Suspect]
     Dosage: 3 MG, 2X/DAY
     Route: 048
     Dates: start: 20130228, end: 20130418
  3. INLYTA [Suspect]
     Dosage: 2 MG, 2X/DAY
     Route: 048
     Dates: start: 20130419, end: 20130502

REACTIONS (9)
  - Disease progression [Fatal]
  - Renal cancer [Fatal]
  - Weight decreased [Not Recovered/Not Resolved]
  - Diarrhoea [Recovering/Resolving]
  - Platelet count decreased [Unknown]
  - Malaise [Unknown]
  - Dysphonia [Unknown]
  - Dyspnoea [Unknown]
  - Decreased appetite [Unknown]
